FAERS Safety Report 25714803 (Version 1)
Quarter: 2025Q3

REPORT INFORMATION
  Report Type: Spontaneous
  Country: US (occurrence: US)
  Receive Date: 20250822
  Receipt Date: 20250822
  Transmission Date: 20251020
  Serious: No
  Sender: AJANTA PHARMA USA INC
  Company Number: US-AJANTA-2025AJA00110

PATIENT
  Age: 16 Year
  Sex: Female
  Weight: 135 kg

DRUGS (3)
  1. SILDENAFIL [Suspect]
     Active Substance: SILDENAFIL
     Dates: start: 20250729, end: 20250730
  2. CLONIDINE [Concomitant]
     Active Substance: CLONIDINE
  3. CLONIDINE [Concomitant]
     Active Substance: CLONIDINE
     Dates: start: 20250729, end: 20250730

REACTIONS (3)
  - Insomnia [Unknown]
  - Wrong product administered [Unknown]
  - Product dispensing error [Unknown]

NARRATIVE: CASE EVENT DATE: 20250725
